FAERS Safety Report 7961911-3 (Version None)
Quarter: 2011Q4

REPORT INFORMATION
  Report Type: 
  Country: None (occurrence: None)
  Receive Date: 20111207
  Receipt Date: 20111205
  Transmission Date: 20120403
  Serious: Yes (Hospitalization, Other)
  Sender: FDA-Public Use
  Company Number: US-PFIZER INC-2011297510

PATIENT
  Sex: Female
  Weight: 58.957 kg

DRUGS (2)
  1. LIPITOR [Suspect]
     Indication: BLOOD CHOLESTEROL INCREASED
     Dosage: 20 MG, DAILY
     Dates: start: 20110901, end: 20111101
  2. SYNTHROID [Concomitant]
     Indication: HYPOTHYROIDISM
     Dosage: 112.5 UG, DAILY

REACTIONS (7)
  - LIVER FUNCTION TEST ABNORMAL [None]
  - MEMORY IMPAIRMENT [None]
  - PAIN IN EXTREMITY [None]
  - DYSSTASIA [None]
  - BONE DISORDER [None]
  - MUSCULAR WEAKNESS [None]
  - READING DISORDER [None]
